FAERS Safety Report 5571186-0 (Version None)
Quarter: 2007Q4

REPORT INFORMATION
  Report Type: 
  Country: None (occurrence: None)
  Receive Date: 20071221
  Receipt Date: 20070104
  Transmission Date: 20080405
  Serious: No
  Sender: FDA-Public Use
  Company Number: A0634124A

PATIENT
  Sex: Male

DRUGS (18)
  1. FLONASE [Suspect]
     Dosage: 50MCG UNKNOWN
     Route: 045
  2. VITAMIN E [Concomitant]
  3. ASPIRIN [Concomitant]
  4. ALLOPURINOL [Concomitant]
  5. FUROSEMIDE [Concomitant]
  6. ZESTRIL [Concomitant]
  7. PREDNISONE [Concomitant]
  8. METOPROLOL [Concomitant]
  9. PLAVIX [Concomitant]
  10. PRIMIDONE [Concomitant]
  11. LANOXIN [Concomitant]
  12. VIT C [Concomitant]
  13. ISOSORBIDE DINITRATE [Concomitant]
  14. COQ-10 [Concomitant]
  15. M.V.I. [Concomitant]
  16. INSULIN [Concomitant]
  17. ADVAIR DISKUS 100/50 [Concomitant]
  18. SPIRIVA [Concomitant]

REACTIONS (1)
  - DRUG INEFFECTIVE [None]
